FAERS Safety Report 7314852-9 (Version None)
Quarter: 2011Q1

REPORT INFORMATION
  Report Type: 
  Country: None (occurrence: None)
  Receive Date: 20110225
  Receipt Date: 20100125
  Transmission Date: 20110831
  Serious: No
  Sender: FDA-Public Use
  Company Number: -MYLANLABS-2010S1000287

PATIENT
  Age: 28 Year
  Sex: Male
  Weight: 79.38 kg

DRUGS (2)
  1. MICARDIS [Concomitant]
  2. AMNESTEEM [Suspect]
     Indication: ACNE
     Dosage: 1MG/KG DIVIDED BID
     Route: 048
     Dates: start: 20091101, end: 20091201

REACTIONS (1)
  - IRRITABILITY [None]
